FAERS Safety Report 7325217-8 (Version None)
Quarter: 2011Q1

REPORT INFORMATION
  Report Type: 
  Country: None (occurrence: None)
  Receive Date: 20110302
  Receipt Date: 20110225
  Transmission Date: 20110831
  Serious: No
  Sender: FDA-Public Use
  Company Number: US-PFIZER INC-2011042019

PATIENT
  Sex: Female
  Weight: 77.098 kg

DRUGS (1)
  1. ADVIL CONGESTION RELIEF [Suspect]
     Indication: NASAL CONGESTION
     Dosage: 200 MG, EVERY 4 HRS
     Route: 048
     Dates: start: 20110201

REACTIONS (1)
  - EYE SWELLING [None]
